FAERS Safety Report 11702425 (Version 2)
Quarter: 2016Q2

REPORT INFORMATION
  Report Type: Report from Study
  Country: US (occurrence: US)
  Receive Date: 20151105
  Receipt Date: 20160408
  Transmission Date: 20160815
  Serious: Yes (Other)
  Sender: FDA-Public Use
  Company Number: ADR-2014-01915

PATIENT
  Age: 40 Year
  Sex: Female

DRUGS (5)
  1. SUFENTA [Suspect]
     Active Substance: SUFENTANIL CITRATE
     Dosage: 205.01 MCG/DAY
     Route: 037
  2. BUPIVACAINE. [Suspect]
     Active Substance: BUPIVACAINE
     Dosage: 8.017MCG/DAY
     Route: 037
  3. COMPOUNDED BACLOFEN [Suspect]
     Active Substance: BACLOFEN
     Dosage: 100.36 MCG/DAY
     Route: 037
  4. BUPIVACAINE. [Suspect]
     Active Substance: BUPIVACAINE
     Dosage: 8.017MCG/DAY
     Route: 037
  5. SUFENTA [Suspect]
     Active Substance: SUFENTANIL CITRATE
     Dosage: 179.98MCG/DAY
     Route: 037

REACTIONS (5)
  - Pocket erosion [Recovered/Resolved]
  - Wound dehiscence [Recovered/Resolved]
  - Medical device site cellulitis [Recovered/Resolved]
  - Medical device site swelling [Recovered/Resolved]
  - Medical device site erythema [Recovered/Resolved]
